FAERS Safety Report 6294817-9 (Version None)
Quarter: 2009Q3

REPORT INFORMATION
  Report Type: 
  Country: None (occurrence: None)
  Receive Date: 20090731
  Receipt Date: 20090731
  Transmission Date: 20100115
  Serious: Yes (Other)
  Sender: FDA-Public Use
  Company Number: None

PATIENT
  Age: 25 Year
  Sex: Male
  Weight: 72.5755 kg

DRUGS (1)
  1. LEVAQUIN [Suspect]
     Indication: PROSTATITIS
     Dosage: 500 MG. ONCE DAILY PO
     Route: 048
     Dates: start: 20090724, end: 20090727

REACTIONS (8)
  - ANXIETY [None]
  - CUBITAL TUNNEL SYNDROME [None]
  - DYSPNOEA [None]
  - INSOMNIA [None]
  - MYALGIA [None]
  - OBSESSIVE-COMPULSIVE DISORDER [None]
  - PARAESTHESIA [None]
  - TENDON PAIN [None]
